FAERS Safety Report 6394223-2 (Version None)
Quarter: 2009Q4

REPORT INFORMATION
  Report Type: 
  Country: None (occurrence: None)
  Receive Date: 20091008
  Receipt Date: 20090925
  Transmission Date: 20100525
  Serious: Yes (Other)
  Sender: FDA-Public Use
  Company Number: CA-GENENTECH-277841

PATIENT
  Sex: Male

DRUGS (1)
  1. OMALIZUMAB [Suspect]
     Indication: ASTHMA
     Dosage: 375 MG, 2/WEEK
     Route: 058
     Dates: start: 20070824

REACTIONS (5)
  - BRONCHITIS [None]
  - EYE PAIN [None]
  - HEADACHE [None]
  - PAIN IN EXTREMITY [None]
  - PNEUMONIA [None]
